FAERS Safety Report 4288578-2 (Version None)
Quarter: 2004Q1

REPORT INFORMATION
  Report Type: 
  Country: None (occurrence: None)
  Receive Date: 20040205
  Receipt Date: 20040112
  Transmission Date: 20041129
  Serious: Yes (Death, Hospitalization)
  Sender: FDA-Public Use
  Company Number: F01200301250

PATIENT
  Age: 75 Year
  Sex: Female

DRUGS (14)
  1. OXALIPLATIN [Suspect]
     Indication: COLORECTAL CANCER
     Dosage: 85 MG/M2 Q2W, INTRAEVENOUS NOS
     Route: 042
     Dates: start: 20031007, end: 20031007
  2. FLUOROURACIL [Suspect]
     Dosage: 500 MG/M2 BOLUS ON D1, D8 AND D15, Q4W, INTRAVENOUS NOS
     Route: 042
     Dates: start: 20031007, end: 20031007
  3. LEUCOVORIN [Suspect]
     Dosage: 20 MG/M2 ON D1, D8 AND D15, Q4W, INTRAVENOUS NOS
     Route: 042
     Dates: start: 20031007, end: 20031007
  4. CAMPTOSAR [Concomitant]
  5. FLUOROURACIL [Concomitant]
  6. LEUCOVORIN CALCIUM [Concomitant]
  7. LEVOXYL [Concomitant]
  8. VIOXX [Concomitant]
  9. PREMARIN [Concomitant]
  10. NEXIUM [Concomitant]
  11. VICODIN (HYDROCODONE TARTRATE+PARACETAMOL) [Concomitant]
  12. AMBIEN [Concomitant]
  13. COMPAZINE [Concomitant]
  14. IMMODIUM (LOPERAMIDE HCL) [Concomitant]

REACTIONS (15)
  - ACUTE PULMONARY OEDEMA [None]
  - BLOOD SODIUM DECREASED [None]
  - CARDIOMEGALY [None]
  - COLORECTAL CANCER [None]
  - DIARRHOEA [None]
  - HAEMATOCHEZIA [None]
  - LUNG INFILTRATION [None]
  - MALIGNANT NEOPLASM PROGRESSION [None]
  - MALNUTRITION [None]
  - METASTASES TO LUNG [None]
  - NAUSEA [None]
  - PNEUMONIA [None]
  - RESPIRATORY FAILURE [None]
  - TACHYCARDIA [None]
  - VOMITING [None]
